FAERS Safety Report 11230250 (Version 1)
Quarter: 2015Q2

REPORT INFORMATION
  Report Type: Spontaneous
  Country: GB (occurrence: None)
  Receive Date: 20150629
  Receipt Date: 20150629
  Transmission Date: 20150821
  Serious: Yes (Hospitalization)
  Sender: FDA-Public Use
  Company Number: UCM201506-000437

PATIENT
  Age: 65 Year
  Sex: Male

DRUGS (1)
  1. DIVALPROEX SODIUM (DIVALPROEX SODIUM) (DIVALPROEX SODIUM) [Suspect]
     Active Substance: DIVALPROEX SODIUM
     Indication: GENERALISED TONIC-CLONIC SEIZURE

REACTIONS (2)
  - Bradykinesia [None]
  - Parkinsonism [None]
